FAERS Safety Report 12197641 (Version 3)
Quarter: 2017Q3

REPORT INFORMATION
  Report Type: Report from Study
  Country: US (occurrence: US)
  Receive Date: 20160322
  Receipt Date: 20170926
  Transmission Date: 20171127
  Serious: Yes (Hospitalization, Other)
  Sender: FDA-Public Use
  Company Number: US-AMGEN-USASL2016033373

PATIENT
  Age: 69 Year
  Sex: Female

DRUGS (1)
  1. PROLIA [Suspect]
     Active Substance: DENOSUMAB
     Indication: OSTEOPOROSIS POSTMENOPAUSAL
     Dosage: UNK
     Route: 065

REACTIONS (12)
  - Pain [Unknown]
  - Spinal column stenosis [Unknown]
  - Breast cancer female [Unknown]
  - Urinary tract infection [Unknown]
  - Gait disturbance [Unknown]
  - Angiopathy [Unknown]
  - Fall [Unknown]
  - Pneumonia [Unknown]
  - Forearm fracture [Unknown]
  - Metastases to lymph nodes [Unknown]
  - Surgery [Unknown]
  - Mental status changes [Unknown]

NARRATIVE: CASE EVENT DATE: 201510
